FAERS Safety Report 8417795-2 (Version None)
Quarter: 2012Q2

REPORT INFORMATION
  Report Type: 
  Country: None (occurrence: None)
  Receive Date: 20120607
  Receipt Date: 20120528
  Transmission Date: 20120825
  Serious: Yes (Other)
  Sender: FDA-Public Use
  Company Number: IT-BRISTOL-MYERS SQUIBB COMPANY-16637522

PATIENT
  Sex: Female

DRUGS (1)
  1. ATAZANAVIR [Suspect]
     Indication: HIV INFECTION

REACTIONS (1)
  - OPTIC NEURITIS [None]
